FAERS Safety Report 11632949 (Version 1)
Quarter: 2015Q4

REPORT INFORMATION
  Report Type: Other
  Country: NZ (occurrence: NZ)
  Receive Date: 20151015
  Receipt Date: 20151015
  Transmission Date: 20160304
  Serious: Yes (Other)
  Sender: FDA-Public Use
  Company Number: NZ-APOTEX-2015AP013281

PATIENT
  Age: 59 Year
  Sex: Female

DRUGS (1)
  1. DILTIAZEM [Suspect]
     Active Substance: DILTIAZEM
     Indication: PRODUCT USED FOR UNKNOWN INDICATION
     Dosage: UNK
     Route: 048

REACTIONS (2)
  - Dermatitis bullous [Unknown]
  - Urticaria [Unknown]
